FAERS Safety Report 5564820-2 (Version None)
Quarter: 2007Q4

REPORT INFORMATION
  Report Type: 
  Country: None (occurrence: None)
  Receive Date: 20071212
  Receipt Date: 20071129
  Transmission Date: 20080405
  Serious: Yes (Life-Threatening, Hospitalization)
  Sender: FDA-Public Use
  Company Number: 062-C5013-07071034

PATIENT
  Age: 68 Year
  Sex: Female
  Weight: 64.4 kg

DRUGS (5)
  1. CC-5013 (LENALIDOMIDE) (CAPSULES) [Suspect]
     Indication: MULTIPLE MYELOMA
     Dosage: 25 MG, DAILY, ORAL
     Route: 048
     Dates: start: 20070627, end: 20070717
  2. DEXAMETHASONE TAB [Suspect]
     Indication: MULTIPLE MYELOMA
     Dosage: 40 MG, DAILY ON DAYS, 1-4, 9-12, 17-20, ORAL
     Route: 048
     Dates: start: 20070627, end: 20070716
  3. ASPIRIN [Concomitant]
  4. VALORON RET (VALORON N) [Concomitant]
  5. TAFIL (ALPRAZOLAM) (0.5 MILLIGRAM) [Concomitant]

REACTIONS (16)
  - AORTIC VALVE INCOMPETENCE [None]
  - BACK PAIN [None]
  - BLOOD PRESSURE DECREASED [None]
  - BUNDLE BRANCH BLOCK RIGHT [None]
  - CYANOSIS [None]
  - FIBROSIS [None]
  - GENERAL PHYSICAL HEALTH DETERIORATION [None]
  - HAEMATOCRIT DECREASED [None]
  - HAEMOGLOBIN DECREASED [None]
  - HEART RATE INCREASED [None]
  - KYPHOSIS [None]
  - OSTEOLYSIS [None]
  - PALLOR [None]
  - PLASMACYTOMA [None]
  - PROTHROMBIN TIME PROLONGED [None]
  - PULMONARY EMBOLISM [None]
